FAERS Safety Report 8204650-6 (Version None)
Quarter: 2012Q1

REPORT INFORMATION
  Report Type: 
  Country: None (occurrence: None)
  Receive Date: 20120313
  Receipt Date: 20120302
  Transmission Date: 20120608
  Serious: Yes (Hospitalization)
  Sender: FDA-Public Use
  Company Number: GB-MPIJNJ-2012-00927

PATIENT

DRUGS (19)
  1. RITUXIMAB [Suspect]
     Indication: B-CELL LYMPHOMA
     Dosage: 678.75 MG, UNK
     Dates: start: 20111124, end: 20111215
  2. AMLODIPINE [Concomitant]
     Dosage: 10 MG, UNK
     Route: 048
  3. SIMVASTATIN [Concomitant]
     Dosage: 40 MG, UNK
     Route: 048
  4. OMEPRAZOLE [Concomitant]
     Dosage: 20 MG, UNK
     Route: 048
  5. DOXORUBICIN HCL [Suspect]
     Dosage: 90 MG, UNK
     Dates: end: 20120208
  6. PREDNISOLONE [Concomitant]
     Dosage: 5 MG, UNK
     Route: 048
  7. RITUXIMAB [Suspect]
     Dosage: 678.75 MG, UNK
     Dates: end: 20120208
  8. CYCLOPHOSPHAMIDE [Suspect]
     Dosage: 1350 MG, UNK
     Dates: end: 20120208
  9. PREDNISOLONE [Suspect]
     Indication: B-CELL LYMPHOMA
     Dosage: 100 MG, UNK
     Dates: start: 20111124, end: 20111215
  10. PERINDOPRIL ERBUMINE [Concomitant]
     Dosage: 5 MG, UNK
     Route: 048
  11. VELCADE [Suspect]
     Indication: B-CELL LYMPHOMA
     Dosage: 2.35 MG, CYCLIC
     Dates: start: 20111215, end: 20111222
  12. PREDNISOLONE [Suspect]
     Dosage: 100 MG, UNK
     Dates: end: 20120208
  13. VELCADE [Suspect]
     Dosage: 2.35 MG, UNK
     Dates: end: 20120215
  14. DOXORUBICIN HCL [Suspect]
     Indication: B-CELL LYMPHOMA
     Dosage: 90.5 MG, UNK
     Dates: start: 20111124, end: 20111215
  15. FOLIC ACID [Concomitant]
     Dosage: 5 MG, UNK
     Route: 048
  16. CYCLOPHOSPHAMIDE [Suspect]
     Indication: B-CELL LYMPHOMA
     Dosage: 1350 MG, UNK
     Dates: start: 20111124, end: 20111215
  17. VINCRISTINE [Suspect]
     Indication: B-CELL LYMPHOMA
     Dosage: 2 MG, UNK
     Dates: start: 20111124, end: 20111215
  18. VINCRISTINE [Suspect]
     Dosage: 2 MG, UNK
     Dates: end: 20120208
  19. CLOPIDOGREL [Concomitant]
     Dosage: 75 MG, UNK
     Route: 048

REACTIONS (4)
  - CHILLS [None]
  - INFECTION [None]
  - PYREXIA [None]
  - COUGH [None]
